FAERS Safety Report 10351484 (Version 1)
Quarter: 2014Q3

REPORT INFORMATION
  Report Type: Report from Study
  Country: US (occurrence: US)
  Receive Date: 20140730
  Receipt Date: 20140730
  Transmission Date: 20150326
  Serious: Yes (Hospitalization)
  Sender: FDA-Public Use
  Company Number: PHHY2012US133052

PATIENT
  Age: 53 Year
  Sex: Male

DRUGS (17)
  1. VENTOLIN HFA [Concomitant]
     Active Substance: ALBUTEROL SULFATE
     Dosage: UNK UKN, (108 4 IN 1 DAY)
  2. OMEPRAZOLE. [Concomitant]
     Active Substance: OMEPRAZOLE
     Dosage: 20 MG, 1 IN 1 DAY
     Route: 048
  3. DUONEB [Concomitant]
     Active Substance: ALBUTEROL SULFATE\IPRATROPIUM BROMIDE
     Dosage: UNK UKN, (0.5 TO 0.25)
  4. ADVAIR DISKUS [Concomitant]
     Active Substance: FLUTICASONE PROPIONATE\SALMETEROL XINAFOATE
     Dosage: UNK (500 TO 50 MCG/DOSE) 2 IN 1 DAY
     Dates: start: 20080123
  5. ASPIRIN. [Concomitant]
     Active Substance: ASPIRIN
     Dosage: 81 MG, 1 IN 1 DAY
  6. VICODIN [Concomitant]
     Active Substance: ACETAMINOPHEN\HYDROCODONE BITARTRATE
     Dosage: UNK UKN, (5 TO 500 MCG/DOSE)
  7. ASTELIN [Concomitant]
     Active Substance: AZELASTINE HYDROCHLORIDE
     Dosage: UNK UKN, (137MCG/ACT)
     Dates: start: 20101028
  8. NEURONTIN [Concomitant]
     Active Substance: GABAPENTIN
     Dosage: 100 MG, 1 IN 1 DAY
  9. PRILOSEC [Concomitant]
     Active Substance: OMEPRAZOLE MAGNESIUM
     Dosage: 20 MG, 1 IN 1 DAY
  10. ALLEGRA [Concomitant]
     Active Substance: FEXOFENADINE HYDROCHLORIDE
     Dosage: 180 MG, 1 IN 1 DAY
     Route: 048
     Dates: start: 20080123
  11. RANITIDINE HCL [Concomitant]
     Active Substance: RANITIDINE HYDROCHLORIDE
     Dosage: 150 MG, 1 IN 1 DAY
     Route: 048
  12. ZANTAC [Concomitant]
     Active Substance: RANITIDINE HYDROCHLORIDE
     Dosage: 150 MG, BID
  13. PREDNISONE. [Concomitant]
     Active Substance: PREDNISONE
     Dosage: 40 MG, BID
  14. SINGULAIR [Concomitant]
     Active Substance: MONTELUKAST SODIUM
     Dosage: 10 MG, 1 IN 1 DAY
     Route: 048
     Dates: start: 20080123
  15. XOLAIR [Suspect]
     Active Substance: OMALIZUMAB
     Indication: ASTHMA
     Dosage: 225 MG, BIW
     Route: 058
  16. DIAZEPAM. [Suspect]
     Active Substance: DIAZEPAM
     Dosage: 5 MG, ONCE IN DAY  (BED TIME)
  17. XANAX [Concomitant]
     Active Substance: ALPRAZOLAM
     Dosage: 0.25 MG, UNK
     Route: 048

REACTIONS (5)
  - Tremor [Unknown]
  - Feeling jittery [Unknown]
  - Asthma [Recovered/Resolved]
  - Hypogammaglobulinaemia [Unknown]
  - Anxiety [Unknown]

NARRATIVE: CASE EVENT DATE: 20120322
